FAERS Safety Report 16575024 (Version 3)
Quarter: 2019Q4

REPORT INFORMATION
  Report Type: Report from Study
  Country: None (occurrence: BE)
  Receive Date: 20190715
  Receipt Date: 20191119
  Transmission Date: 20200122
  Serious: Yes (Hospitalization)
  Sender: FDA-Public Use
  Company Number: BE-ABBVIE-19K-013-2850209-00

PATIENT
  Sex: Male

DRUGS (6)
  1. ASAFLOW [Concomitant]
     Active Substance: ASPIRIN
     Indication: PRODUCT USED FOR UNKNOWN INDICATION
  2. DUODOPA [Suspect]
     Active Substance: CARBIDOPA\LEVODOPA
     Indication: PARKINSON^S DISEASE
     Dosage: MD=8ML, CD=4.5ML/HR DURING 16HRS, ED=2ML
     Route: 050
     Dates: start: 20130204, end: 20131029
  3. DUODOPA [Suspect]
     Active Substance: CARBIDOPA\LEVODOPA
     Dosage: MD=9ML, CD=3.8ML/HR DURING 16HRS, ED=3.5ML
     Route: 050
     Dates: start: 20190206, end: 20190911
  4. DUODOPA [Suspect]
     Active Substance: CARBIDOPA\LEVODOPA
     Dosage: MD=8ML, CD=3.5ML/HR DURING 16HRS, ED=3ML?DOSE DECREASED
     Route: 050
     Dates: start: 20190911
  5. STALEVO [Concomitant]
     Active Substance: CARBIDOPA\ENTACAPONE\LEVODOPA
     Indication: PARKINSON^S DISEASE
     Dosage: FORM STRENGTH: 200MG/50MG/200MG; RESCUE MEDICATION
  6. DUODOPA [Suspect]
     Active Substance: CARBIDOPA\LEVODOPA
     Dosage: DOSES CONTINUOUSLY MONITORED AND ADAPTED
     Route: 050
     Dates: start: 20131029, end: 20190206

REACTIONS (3)
  - Colon operation [Recovering/Resolving]
  - Dyskinesia [Not Recovered/Not Resolved]
  - Hallucination [Unknown]

NARRATIVE: CASE EVENT DATE: 20190828
